FAERS Safety Report 9230534 (Version 1)
Quarter: 2013Q2

REPORT INFORMATION
  Report Type: Spontaneous
  Country: GB (occurrence: None)
  Receive Date: 20130411
  Receipt Date: 20130411
  Transmission Date: 20140414
  Serious: Yes (Hospitalization, Other)
  Sender: FDA-Public Use
  Company Number: GER/UKI/13/0028960

PATIENT
  Age: 79 Year
  Sex: Female
  Weight: 50.9 kg

DRUGS (13)
  1. LAMOTRIGINE (LAMOTRIGINE) [Suspect]
     Indication: PETIT MAL EPILEPSY
     Route: 048
     Dates: start: 20130326, end: 20130328
  2. ALENDRONIC ACID (ALENDRONIC ACID) [Concomitant]
  3. CALCICHEW D3 [Concomitant]
  4. CIPROFLOXACIN (CIPROFLOXACIN) [Concomitant]
  5. DALTEPARIN [Concomitant]
  6. GENTAMACIN (GENTAMICIN) [Concomitant]
  7. LETROZOLE (LETROZOLE) [Concomitant]
  8. MAALOX (ALUDROX /00082501/. [Concomitant]
  9. MIRTAZAPINE (MIRTAZAPINE) [Concomitant]
  10. NYSTAN (NYSTATIN) [Concomitant]
  11. PARACETAMOL (PARACETAMOL) [Concomitant]
  12. PROPRANOLOL (PROPRANOLOL) [Concomitant]
  13. SANDO-K (POTASSIUM CHLORIDE) [Concomitant]

REACTIONS (2)
  - Mouth ulceration [None]
  - Lip ulceration [None]
